FAERS Safety Report 5386978-0 (Version None)
Quarter: 2007Q3

REPORT INFORMATION
  Report Type: 
  Country: None (occurrence: None)
  Receive Date: 20070713
  Receipt Date: 20070703
  Transmission Date: 20080115
  Serious: Yes (Other)
  Sender: FDA-Public Use
  Company Number: US-PFIZER INC-2007055313

PATIENT
  Sex: Female
  Weight: 89.09 kg

DRUGS (24)
  1. DILANTIN [Suspect]
     Indication: EPILEPSY
     Dosage: DAILY DOSE:200MG
  2. NEURONTIN [Suspect]
  3. MAXAQUIN [Suspect]
  4. XANAX [Suspect]
  5. FLAGYL [Suspect]
  6. MORPHINE [Suspect]
  7. BENZYLPENICILLIN SODIUM [Concomitant]
  8. ALLOPURINOL [Concomitant]
  9. VIOKASE [Concomitant]
  10. ALL OTHER THERAPEUTIC PRODUCTS [Concomitant]
  11. NEXIUM [Concomitant]
  12. VITAMIN B-12 [Concomitant]
  13. OSCAL [Concomitant]
  14. CETIRIZINE HCL [Concomitant]
  15. MONTELUKAST SODIUM [Concomitant]
  16. INDERAL [Concomitant]
  17. CARAFATE [Concomitant]
  18. COLACE [Concomitant]
  19. PERI-COLACE [Concomitant]
  20. SENNA [Concomitant]
  21. POTASSIUM CHLORIDE [Concomitant]
  22. GLUCOSAMINE [Concomitant]
  23. ESTRADIOL [Concomitant]
  24. ANTIEMETICS AND ANTINAUSEANTS [Concomitant]

REACTIONS (29)
  - ABDOMINAL ADHESIONS [None]
  - ADVERSE DRUG REACTION [None]
  - AMNESIA [None]
  - ANAEMIA [None]
  - ANTICONVULSANT DRUG LEVEL ABNORMAL [None]
  - ANTICONVULSANT DRUG LEVEL ABOVE THERAPEUTIC [None]
  - ANTICONVULSANT DRUG LEVEL BELOW THERAPEUTIC [None]
  - BLADDER DISORDER [None]
  - BONE PAIN [None]
  - CHOLECYSTECTOMY [None]
  - COMA [None]
  - CONSTIPATION [None]
  - CONVULSION [None]
  - COORDINATION ABNORMAL [None]
  - CYSTITIS [None]
  - DIARRHOEA [None]
  - DRUG INTERACTION [None]
  - ILEUS [None]
  - INTESTINAL FISTULA [None]
  - INTESTINAL OPERATION [None]
  - MALABSORPTION [None]
  - PROTEIN TOTAL DECREASED [None]
  - RENAL IMPAIRMENT [None]
  - RESPIRATORY DEPRESSION [None]
  - ROAD TRAFFIC ACCIDENT [None]
  - THYROID DISORDER [None]
  - TREMOR [None]
  - URETERIC DIVERSION OPERATION [None]
  - VEIN DISORDER [None]
